FAERS Safety Report 6731433-6 (Version None)
Quarter: 2010Q2

REPORT INFORMATION
  Report Type: 
  Country: None (occurrence: None)
  Receive Date: 20100518
  Receipt Date: 20100518
  Transmission Date: 20101027
  Serious: Yes (Life-Threatening, Hospitalization, Other)
  Sender: FDA-Public Use
  Company Number: None

PATIENT
  Age: 59 Year
  Sex: Male
  Weight: 72.5755 kg

DRUGS (2)
  1. RITUXAN [Suspect]
     Indication: NON-HODGKIN'S LYMPHOMA
     Dosage: EVERY 3 WEEKS IV
     Route: 042
     Dates: start: 20091216, end: 20091216
  2. C-H-O-P [Suspect]

REACTIONS (14)
  - BLOOD CALCIUM DECREASED [None]
  - BLOOD MAGNESIUM DECREASED [None]
  - BLOOD SODIUM DECREASED [None]
  - CANDIDIASIS [None]
  - CLOSTRIDIUM DIFFICILE COLITIS [None]
  - CONFUSIONAL STATE [None]
  - DEVICE RELATED INFECTION [None]
  - FEBRILE NEUTROPENIA [None]
  - HERPES SIMPLEX [None]
  - HYPOKALAEMIA [None]
  - INFECTION [None]
  - PANCYTOPENIA [None]
  - UROSEPSIS [None]
  - VOMITING PROJECTILE [None]
